FAERS Safety Report 6619239-X (Version None)
Quarter: 2010Q1

REPORT INFORMATION
  Report Type: 
  Country: None (occurrence: None)
  Receive Date: 20100301
  Receipt Date: 20100218
  Transmission Date: 20100710
  Serious: Yes (Hospitalization)
  Sender: FDA-Public Use
  Company Number: 235551J09USA

PATIENT
  Age: 53 Year
  Sex: Female
  Weight: 93 kg

DRUGS (7)
  1. REBIF [Suspect]
     Indication: MULTIPLE SCLEROSIS
     Dosage: 44 MCG, 3 IN 1 WEEKS,  SUBCUTANEOUS
     Route: 058
     Dates: start: 20021228, end: 20100101
  2. OXYCONTIN [Concomitant]
  3. KEPPRA [Concomitant]
  4. NEURONTIN [Concomitant]
  5. DIOVAN [Concomitant]
  6. PLAVIX [Concomitant]
  7. MORPHINE SULFATE INJ [Concomitant]

REACTIONS (4)
  - CONVULSION [None]
  - DEHYDRATION [None]
  - RENAL FAILURE [None]
  - URINARY TRACT INFECTION [None]
